FAERS Safety Report 15481794 (Version 2)
Quarter: 2018Q4

REPORT INFORMATION
  Report Type: Report from Study
  Country: US (occurrence: US)
  Receive Date: 20181010
  Receipt Date: 20181022
  Transmission Date: 20190205
  Serious: No
  Sender: FDA-Public Use
  Company Number: US-IPSEN BIOPHARMACEUTICALS, INC.-2018-03985

PATIENT
  Age: 66 Year
  Sex: Female
  Weight: 86.18 kg

DRUGS (13)
  1. CABERGOLINE. [Concomitant]
     Active Substance: CABERGOLINE
  2. NEXIUM [Concomitant]
     Active Substance: ESOMEPRAZOLE MAGNESIUM
  3. WELLBUTRIN [Concomitant]
     Active Substance: BUPROPION HYDROCHLORIDE
  4. SOMATULINE [Suspect]
     Active Substance: LANREOTIDE ACETATE
     Dosage: DOSE UNKNOWN
     Route: 065
     Dates: start: 201209
  5. OXYCODONE [Concomitant]
     Active Substance: OXYCODONE
  6. LIPITOR [Concomitant]
     Active Substance: ATORVASTATIN CALCIUM
  7. LOTENSIN [Concomitant]
     Active Substance: BENAZEPRIL HYDROCHLORIDE
  8. NEURONTIN [Concomitant]
     Active Substance: GABAPENTIN
  9. SOMATULINE [Suspect]
     Active Substance: LANREOTIDE ACETATE
     Indication: ACROMEGALY
     Dosage: 90 MG
     Route: 030
  10. COREG [Concomitant]
     Active Substance: CARVEDILOL
  11. SOMATULINE [Suspect]
     Active Substance: LANREOTIDE ACETATE
     Dosage: 60 MG/0.2 ML
     Route: 058
     Dates: start: 20150708
  12. SUCRALFATE. [Concomitant]
     Active Substance: SUCRALFATE
  13. HCTZ [Concomitant]
     Active Substance: HYDROCHLOROTHIAZIDE

REACTIONS (3)
  - Abdominal pain upper [Unknown]
  - Abdominal discomfort [Not Recovered/Not Resolved]
  - Product dose omission [Unknown]

NARRATIVE: CASE EVENT DATE: 20180313
